FAERS Safety Report 25088902 (Version 1)
Quarter: 2025Q1

REPORT INFORMATION
  Report Type: Spontaneous
  Country: US (occurrence: US)
  Receive Date: 20250318
  Receipt Date: 20250318
  Transmission Date: 20250409
  Serious: Yes (Other)
  Sender: AMNEAL
  Company Number: US-AMNEAL-2024-AMRX-04621

PATIENT
  Age: 50 Year
  Sex: Female

DRUGS (2)
  1. BACLOFEN [Suspect]
     Active Substance: BACLOFEN
     Indication: Product used for unknown indication
     Dosage: 920 MICROGRAM (2000 MCG/ML), DAILY
     Route: 037
  2. BACLOFEN [Suspect]
     Active Substance: BACLOFEN
     Dosage: 947 MICROGRAM (2000 MCG/ML), DAILY
     Route: 037

REACTIONS (6)
  - Muscle spasticity [Recovered/Resolved]
  - Pain [Unknown]
  - Muscle tightness [Recovered/Resolved]
  - Muscle tightness [Not Recovered/Not Resolved]
  - Fall [Unknown]
  - Device alarm issue [Recovered/Resolved]

NARRATIVE: CASE EVENT DATE: 20241202
